FAERS Safety Report 21773854 (Version 3)
Quarter: 2023Q2

REPORT INFORMATION
  Report Type: Spontaneous
  Country: US (occurrence: US)
  Receive Date: 20221223
  Receipt Date: 20230609
  Transmission Date: 20230721
  Serious: Yes (Hospitalization, Other)
  Sender: FDA-Public Use
  Company Number: US-BRISTOL-MYERS SQUIBB COMPANY-2022-157250

PATIENT
  Age: 48 Year
  Sex: Male

DRUGS (1)
  1. REVLIMID [Suspect]
     Active Substance: LENALIDOMIDE
     Indication: Product used for unknown indication
     Dosage: DAILY FOR 14 DAYS
     Route: 048

REACTIONS (7)
  - Respiratory syncytial virus infection [Unknown]
  - Influenza [Unknown]
  - Pneumonia [Unknown]
  - Herpes zoster [Unknown]
  - Off label use [Unknown]
  - Product dose omission issue [Unknown]
  - Asthenia [Unknown]
